FAERS Safety Report 25307923 (Version 2)
Quarter: 2025Q2

REPORT INFORMATION
  Report Type: Spontaneous
  Country: FR (occurrence: FR)
  Receive Date: 20250513
  Receipt Date: 20250521
  Transmission Date: 20250717
  Serious: Yes (Hospitalization)
  Sender: MYLAN
  Company Number: None

PATIENT
  Age: 1 Week
  Sex: Male

DRUGS (4)
  1. NOREPINEPHRINE [Suspect]
     Active Substance: NOREPINEPHRINE
     Indication: Lung assist device therapy
     Dates: start: 20250411, end: 20250411
  2. NOREPINEPHRINE [Suspect]
     Active Substance: NOREPINEPHRINE
     Route: 042
     Dates: start: 20250411, end: 20250411
  3. NOREPINEPHRINE [Suspect]
     Active Substance: NOREPINEPHRINE
     Route: 042
     Dates: start: 20250411, end: 20250411
  4. NOREPINEPHRINE [Suspect]
     Active Substance: NOREPINEPHRINE
     Dates: start: 20250411, end: 20250411

REACTIONS (3)
  - Peripheral ischaemia [Recovering/Resolving]
  - Incorrect dose administered [Recovered/Resolved]
  - Overdose [Recovered/Resolved]

NARRATIVE: CASE EVENT DATE: 20250411
